FAERS Safety Report 14425683 (Version 1)
Quarter: 2018Q1

REPORT INFORMATION
  Report Type: Spontaneous
  Country: US (occurrence: US)
  Receive Date: 20180122
  Receipt Date: 20180122
  Transmission Date: 20180509
  Serious: Yes (Hospitalization)
  Sender: FDA-Public Use
  Company Number: None

PATIENT
  Age: 58 Year
  Sex: Male
  Weight: 100.3 kg

DRUGS (1)
  1. ADALIMUMAB [Suspect]
     Active Substance: ADALIMUMAB
     Indication: PSORIATIC ARTHROPATHY
     Dosage: ?          OTHER FREQUENCY:EVERY OTHER WEEK;?
     Route: 058

REACTIONS (9)
  - Aspartate aminotransferase increased [None]
  - Dyspnoea [None]
  - Weight increased [None]
  - Oedema peripheral [None]
  - Alanine aminotransferase increased [None]
  - Localised oedema [None]
  - Blood creatine phosphokinase increased [None]
  - Gastrointestinal oedema [None]
  - Generalised oedema [None]

NARRATIVE: CASE EVENT DATE: 20171205
